FAERS Safety Report 20932036 (Version 1)
Quarter: 2022Q2

REPORT INFORMATION
  Report Type: Spontaneous
  Country: US (occurrence: None)
  Receive Date: 20220607
  Receipt Date: 20220607
  Transmission Date: 20220721
  Serious: Yes (Hospitalization)
  Sender: FDA-Public Use
  Company Number: None

PATIENT
  Sex: Male

DRUGS (6)
  1. ESBRIET [Suspect]
     Active Substance: PIRFENIDONE
  2. ESCITALOPRAM TAB [Concomitant]
  3. LEXAPRO TAB [Concomitant]
  4. LOSARTAN POT TAB [Concomitant]
  5. OFLOXACIN DRO [Concomitant]
  6. PREGABALIN CAP 75MG [Concomitant]

REACTIONS (1)
  - Hospitalisation [None]
